FAERS Safety Report 12936041 (Version 4)
Quarter: 2016Q4

REPORT INFORMATION
  Report Type: Spontaneous
  Country: TR (occurrence: TR)
  Receive Date: 20161114
  Receipt Date: 20161202
  Transmission Date: 20170207
  Serious: Yes (Life-Threatening, Other)
  Sender: FDA-Public Use
  Company Number: TR-ROCHE-1854094

PATIENT
  Age: 31 Year
  Sex: Female

DRUGS (1)
  1. XOLAIR [Suspect]
     Active Substance: OMALIZUMAB
     Indication: ASTHMA
     Dosage: 300 MG, QMO (ONCE MONTHLY)
     Route: 058
     Dates: start: 20160601, end: 20161107

REACTIONS (8)
  - Nausea [Recovered/Resolved]
  - Hypoglycaemia [Recovered/Resolved]
  - Loss of consciousness [Recovered/Resolved]
  - Syncope [Recovered/Resolved]
  - Hypotension [Recovered/Resolved]
  - Vomiting [Recovered/Resolved]
  - Bradycardia [Recovered/Resolved]
  - Hyperhidrosis [Recovered/Resolved]

NARRATIVE: CASE EVENT DATE: 20161107
